FAERS Safety Report 4276038-4 (Version None)
Quarter: 2004Q1

REPORT INFORMATION
  Report Type: 
  Country: None (occurrence: None)
  Receive Date: 20040121
  Receipt Date: 20030703
  Transmission Date: 20041129
  Serious: No
  Sender: FDA-Public Use
  Company Number: US-GLAXOSMITHKLINE-A0416079A

PATIENT
  Age: 48 Year
  Sex: Female

DRUGS (3)
  1. VALTREX [Suspect]
     Dosage: 500MG PER DAY
     Route: 048
     Dates: start: 20020101
  2. SYNTHROID [Concomitant]
  3. ACYCLOVIR [Concomitant]
     Dates: start: 19920101, end: 20020101

REACTIONS (1)
  - HERPES ZOSTER [None]
